FAERS Safety Report 9384713 (Version 3)
Quarter: 2013Q3

REPORT INFORMATION
  Report Type: Spontaneous
  Country: JP (occurrence: None)
  Receive Date: 20130701
  Receipt Date: 20130806
  Transmission Date: 20140515
  Serious: Yes (Hospitalization)
  Sender: FDA-Public Use
  Company Number: 2013JP001829

PATIENT
  Age: 70 Year
  Sex: Female
  Weight: 45 kg

DRUGS (29)
  1. PONATINIB [Suspect]
     Indication: CHRONIC MYELOID LEUKAEMIA
     Route: 048
     Dates: start: 20130527, end: 20130616
  2. PIMOBENDAN TAB (PIMOBENDAN) [Concomitant]
  3. FRANDOL S (ISOSORBIDE DINITRATE) [Concomitant]
  4. NEUQUINON (UBIDECARENONE) [Concomitant]
  5. URSO (URSODEOXYCHOLIC ACID) [Concomitant]
  6. BIOFEMIN R (STREPTOCCUS FAECALIS) [Concomitant]
  7. GASLON N (IRSOGLADINE MALEATE) [Concomitant]
  8. ISODINE (POVIDONE-IODINE) [Concomitant]
  9. VOLTAREN (DICLOFENAC POTASSIUM) [Concomitant]
  10. LENDORMIN (BROTIZOLAM) [Concomitant]
  11. GASTER [Concomitant]
  12. GLUCOSE 5% BRAUN (GLUCOSE) [Concomitant]
  13. INTRALIPID (LIPIDS NOS) [Concomitant]
  14. AMIKACIN SULFATE (AMIKACIN SULFATE) [Concomitant]
  15. LOXONIN (LOXOPROFEN SODIUM0 [Concomitant]
  16. BONOTEO (MINODRONIC ACID) [Concomitant]
  17. LOXONIN (LOXOPROFEN SODIUM) [Concomitant]
  18. MAGMITT (MAGNESIUM OXIDE) [Concomitant]
  19. PURSENNID (SENNOSIDE A+B CALCIUM) [Concomitant]
  20. AMIZET (AMINO ACIDS NOS) [Concomitant]
  21. KCI (KCI) [Concomitant]
  22. MINERALIN (COPPER SULFATE, FERRIC CHLORIDE, MANGANESE CHLORIDE, POTTASSIUM IODIDE, ZINC SULFATE) [Concomitant]
  23. VITAJECT (CYANOCOBALAMIN, PYRIDOXINE HYDROCHLORIDE, THIAMINE HYDROCHLORIDE) [Concomitant]
  24. GLUCOSE 5% BRAUN (GLUCOSE) [Concomitant]
  25. GLUCOSE (GLUCOSE) [Concomitant]
  26. FINIBAX (DORIPENEM) [Concomitant]
  27. HYALEIN MINI (HYALURONATE SODIUM) [Concomitant]
  28. XALATAN (LATANOPROST) [Concomitant]
  29. AZOPT (BRINZOLAMIDE) [Concomitant]

REACTIONS (11)
  - Pulmonary oedema [None]
  - Pleural effusion [None]
  - Cardiac failure [None]
  - Pyrexia [None]
  - Cardiomegaly [None]
  - Pulmonary congestion [None]
  - Dyspepsia [None]
  - Electrocardiogram T wave inversion [None]
  - Supraventricular extrasystoles [None]
  - Ventricular extrasystoles [None]
  - Electrocardiogram QT prolonged [None]
